FAERS Safety Report 9250987 (Version 2)
Quarter: 2013Q4

REPORT INFORMATION
  Report Type: Spontaneous
  Country: US (occurrence: US)
  Receive Date: 20130424
  Receipt Date: 20131004
  Transmission Date: 20140711
  Serious: Yes (Hospitalization, Disabling)
  Sender: FDA-Public Use
  Company Number: US-ASTRAZENECA-2013SE27541

PATIENT
  Age: 707 Month
  Sex: Male

DRUGS (12)
  1. NEXIUM [Suspect]
     Indication: DYSPEPSIA
     Dosage: 2 PER DAY
     Route: 048
     Dates: start: 200511, end: 200905
  2. NEXIUM [Suspect]
     Indication: GASTROOESOPHAGEAL REFLUX DISEASE
     Dosage: 2 PER DAY
     Route: 048
     Dates: start: 200511, end: 200905
  3. NEXIUM [Suspect]
     Indication: DYSPEPSIA
     Dosage: 2 PER DAY
     Route: 048
     Dates: start: 200511, end: 200905
  4. OMEPRAZOLE [Suspect]
     Route: 048
  5. ROLAIDS [Concomitant]
  6. AMLOPINE BESYLATE [Concomitant]
     Indication: BLOOD PRESSURE ABNORMAL
  7. LOVASTATIN [Concomitant]
     Indication: BLOOD CHOLESTEROL ABNORMAL
  8. ASPIRIN [Concomitant]
  9. FISH OIL [Concomitant]
  10. ATACAND [Concomitant]
  11. COZAAR [Concomitant]
  12. HYDROCODONE [Concomitant]

REACTIONS (7)
  - Back injury [Unknown]
  - Impaired work ability [Unknown]
  - Back pain [Unknown]
  - Osteoporosis [Unknown]
  - Bone density decreased [Unknown]
  - Multiple fractures [Unknown]
  - Arthritis [Unknown]
